FAERS Safety Report 11110894 (Version 1)
Quarter: 2015Q2

REPORT INFORMATION
  Report Type: Report from Study
  Country: BR (occurrence: BR)
  Receive Date: 20150513
  Receipt Date: 20150513
  Transmission Date: 20150821
  Serious: Yes (Death, Life-Threatening, Hospitalization)
  Sender: FDA-Public Use
  Company Number: BR-BAYER-2015-005469

PATIENT
  Age: 71 Year
  Sex: Male
  Weight: 70 kg

DRUGS (2)
  1. CAPTOPRIL. [Concomitant]
     Active Substance: CAPTOPRIL
     Indication: HYPERTENSION
     Dosage: UNK
     Route: 048
     Dates: start: 2005
  2. NEXAVAR [Suspect]
     Active Substance: SORAFENIB
     Indication: HEPATIC NEOPLASM
     Dosage: 400 MG, BID
     Route: 048
     Dates: start: 20141223, end: 201504

REACTIONS (23)
  - Vital functions abnormal [Recovered/Resolved]
  - Abasia [Recovering/Resolving]
  - Hot flush [Recovered/Resolved]
  - Headache [Recovering/Resolving]
  - Hepatic cancer [Fatal]
  - Feeding disorder [Recovering/Resolving]
  - General physical health deterioration [Recovering/Resolving]
  - Nausea [Not Recovered/Not Resolved]
  - Decreased appetite [Not Recovered/Not Resolved]
  - Erythema [Recovered/Resolved]
  - Chest pain [Recovering/Resolving]
  - Erythema [Not Recovered/Not Resolved]
  - Neck pain [Recovering/Resolving]
  - Mobility decreased [Recovered/Resolved]
  - Skin hypertrophy [Not Recovered/Not Resolved]
  - Back pain [Recovering/Resolving]
  - Aphagia [Recovering/Resolving]
  - Asthenia [Recovering/Resolving]
  - Pyrexia [Recovered/Resolved]
  - Weight decreased [Not Recovered/Not Resolved]
  - Burning sensation [Recovering/Resolving]
  - Aphasia [Recovering/Resolving]
  - Facial pain [Recovering/Resolving]

NARRATIVE: CASE EVENT DATE: 20141224
